FAERS Safety Report 4735188-6 (Version None)
Quarter: 2005Q3

REPORT INFORMATION
  Report Type: 
  Country: None (occurrence: None)
  Receive Date: 20050804
  Receipt Date: 20050721
  Transmission Date: 20060218
  Serious: Yes (Other)
  Sender: FDA-Public Use
  Company Number: 2005068861

PATIENT
  Age: 62 Year
  Sex: Female
  Weight: 92.9874 kg

DRUGS (13)
  1. BEXTRA [Suspect]
     Indication: BACK PAIN
     Dosage: 20 MG (20 MG, 2 IN 1 D), ORAL
     Route: 048
     Dates: start: 20030122
  2. BEXTRA [Suspect]
     Indication: INFLAMMATION
     Dosage: 20 MG (20 MG, 2 IN 1 D), ORAL
     Route: 048
     Dates: start: 20030122
  3. BEXTRA [Suspect]
     Indication: PSORIATIC ARTHROPATHY
     Dosage: 20 MG (20 MG, 2 IN 1 D), ORAL
     Route: 048
     Dates: start: 20030122
  4. BEXTRA [Suspect]
     Indication: RHEUMATOID ARTHRITIS
     Dosage: 20 MG (20 MG, 2 IN 1 D), ORAL
     Route: 048
     Dates: start: 20030122
  5. BEXTRA [Suspect]
     Indication: SPINAL OSTEOARTHRITIS
     Dosage: 20 MG (20 MG, 2 IN 1 D), ORAL
     Route: 048
     Dates: start: 20030122
  6. DRUG, UNSPECIFIED (DRUG, UNSPECIFIED) [Suspect]
     Indication: PSORIASIS
     Dosage: SUBCUTANEOUS
     Route: 058
     Dates: start: 20040101, end: 20040101
  7. ETANERCEPT (ETANERCEPT) [Suspect]
     Indication: PSORIASIS
     Dosage: 25 MG (25 MG, 2 IN 1 WK), SUBCUTANEOUS
     Route: 058
     Dates: start: 20040801
  8. LOTREL [Concomitant]
  9. THEOPHYLLINE [Concomitant]
  10. ADVAIR (FLUTICASONE PROPIONATE, SALMETEROL XINAFOATE) [Concomitant]
  11. PROVENTIL [Concomitant]
  12. CYCLOSPORINE [Concomitant]
  13. METHOTREXATE [Concomitant]

REACTIONS (13)
  - DIABETES MELLITUS NON-INSULIN-DEPENDENT [None]
  - DRUG EFFECT DECREASED [None]
  - DRUG INTERACTION [None]
  - HERPES ZOSTER [None]
  - PAIN [None]
  - PSORIASIS [None]
  - RASH MACULAR [None]
  - RASH PRURITIC [None]
  - SKIN EXFOLIATION [None]
  - SKIN OEDEMA [None]
  - SKIN REACTION [None]
  - TREATMENT NONCOMPLIANCE [None]
  - WOUND SECRETION [None]
